FAERS Safety Report 4472665-X (Version None)
Quarter: 2004Q4

REPORT INFORMATION
  Report Type: 
  Country: None (occurrence: None)
  Receive Date: 20041008
  Receipt Date: 20040921
  Transmission Date: 20050328
  Serious: Yes (Hospitalization, Other)
  Sender: FDA-Public Use
  Company Number: JP_040904625

PATIENT
  Age: 35 Year
  Sex: Female

DRUGS (6)
  1. ONCOVIN [Suspect]
     Indication: DIFFUSE LARGE B-CELL LYMPHOMA
  2. METHOTREXATE [Concomitant]
  3. ADRIAMYCIN PFS [Concomitant]
  4. CYCLOPHOSPHAMIDE [Concomitant]
  5. PREDNISOLONE [Concomitant]
  6. BLEOMYCIN [Concomitant]

REACTIONS (3)
  - HEPATITIS [None]
  - HERPES ZOSTER [None]
  - VARICELLA [None]
